FAERS Safety Report 17659408 (Version 1)
Quarter: 2020Q2

REPORT INFORMATION
  Report Type: Spontaneous
  Country: US (occurrence: US)
  Receive Date: 20200413
  Receipt Date: 20200413
  Transmission Date: 20200713
  Serious: No
  Sender: FDA-Public Use
  Company Number: US-BION-007822

PATIENT
  Age: 80 Year
  Sex: Female
  Weight: 78 kg

DRUGS (1)
  1. ALEVE [Suspect]
     Active Substance: NAPROXEN SODIUM
     Indication: PAIN
     Dosage: 1 LIQUID GEL EVERY 12 HOURS
     Route: 048

REACTIONS (2)
  - Oropharyngeal discomfort [Unknown]
  - Product size issue [Unknown]
